FAERS Safety Report 22238813 (Version 1)
Quarter: 2023Q2

REPORT INFORMATION
  Report Type: Spontaneous
  Country: US (occurrence: None)
  Receive Date: 20230420
  Receipt Date: 20230420
  Transmission Date: 20230721
  Serious: Yes (Life-Threatening, Hospitalization, Disabling)
  Sender: FDA-Public Use
  Company Number: None

PATIENT
  Age: 46 Year
  Sex: Female
  Weight: 59.4 kg

DRUGS (9)
  1. INJECTAFER [Suspect]
     Active Substance: FERRIC CARBOXYMALTOSE
     Indication: Iron deficiency anaemia
     Dates: start: 20230303, end: 20230315
  2. PREDNISONE [Concomitant]
     Active Substance: PREDNISONE
  3. LISINOPRIL [Concomitant]
     Active Substance: LISINOPRIL
  4. ATIVAN [Concomitant]
     Active Substance: LORAZEPAM
  5. PHOS NAK powder [Concomitant]
  6. LUNESTA [Concomitant]
     Active Substance: ESZOPICLONE
  7. GABAPENTIN [Concomitant]
     Active Substance: GABAPENTIN
  8. PROPRANOLOL [Concomitant]
     Active Substance: PROPRANOLOL HYDROCHLORIDE
  9. SIMPONI [Concomitant]
     Active Substance: GOLIMUMAB

REACTIONS (3)
  - Hypophosphataemia [None]
  - Tachycardia [None]
  - Neuropathy peripheral [None]

NARRATIVE: CASE EVENT DATE: 20230327
